FAERS Safety Report 17502319 (Version 1)
Quarter: 2020Q1

REPORT INFORMATION
  Report Type: Spontaneous
  Country: PL (occurrence: PL)
  Receive Date: 20200305
  Receipt Date: 20200305
  Transmission Date: 20200409
  Serious: Yes (Hospitalization)
  Sender: FDA-Public Use
  Company Number: PL-MYLANLABS-2020M1023844

PATIENT
  Age: 48 Year
  Sex: Female
  Weight: 73 kg

DRUGS (3)
  1. NEOSINE [Suspect]
     Active Substance: INOSINE PRANOBEX
     Indication: UPPER RESPIRATORY TRACT INFECTION
     Dosage: 1 GRAM
     Route: 048
     Dates: start: 20190304, end: 20190316
  2. KLACID [Suspect]
     Active Substance: CLARITHROMYCIN
     Indication: UPPER RESPIRATORY TRACT INFECTION
     Dosage: DOSAGE - UNKNOWN
     Route: 048
     Dates: start: 20190221, end: 20190228
  3. GRIPEX /00020001/ [Suspect]
     Active Substance: ACETAMINOPHEN
     Indication: UPPER RESPIRATORY TRACT INFECTION
     Dosage: 325 MILLIGRAM
     Route: 048
     Dates: start: 20190216, end: 20190219

REACTIONS (1)
  - Erythema multiforme [Recovering/Resolving]

NARRATIVE: CASE EVENT DATE: 20190302
